FAERS Safety Report 6228949-8 (Version None)
Quarter: 2009Q2

REPORT INFORMATION
  Report Type: 
  Country: None (occurrence: None)
  Receive Date: 20090615
  Receipt Date: 20090610
  Transmission Date: 20091009
  Serious: Yes (Death, Hospitalization, Other)
  Sender: FDA-Public Use
  Company Number: FR-BRISTOL-MYERS SQUIBB COMPANY-14658850

PATIENT
  Age: 88 Year
  Sex: Female

DRUGS (12)
  1. COUMADIN [Suspect]
     Dates: end: 20090510
  2. VASTEN [Interacting]
     Dates: end: 20090511
  3. LOVENOX [Interacting]
     Dosage: LOVENOX 6000 IU 0.5ML IN MORNING + EVENING
     Dates: start: 20090506, end: 20090511
  4. KARDEGIC [Interacting]
     Dates: end: 20090511
  5. FUROSEMIDE [Concomitant]
  6. PERINDOPRIL ERBUMINE [Concomitant]
  7. ALDACTONE [Concomitant]
  8. BISOPROLOL [Concomitant]
  9. FORLAX [Concomitant]
     Dosage: 1DF=4000 UNITS NOT SPECIFIED
  10. HALDOL [Concomitant]
  11. INIPOMP [Concomitant]
  12. IXEL [Concomitant]

REACTIONS (6)
  - CIRCULATORY COLLAPSE [None]
  - DRUG INTERACTION [None]
  - GASTROINTESTINAL HAEMORRHAGE [None]
  - INFECTION [None]
  - INTERNATIONAL NORMALISED RATIO INCREASED [None]
  - PLEURAL EFFUSION [None]
